FAERS Safety Report 16423571 (Version 1)
Quarter: 2019Q2

REPORT INFORMATION
  Report Type: Spontaneous
  Country: GB (occurrence: GB)
  Receive Date: 20190613
  Receipt Date: 20190613
  Transmission Date: 20190711
  Serious: Yes (Other)
  Sender: FDA-Public Use
  Company Number: GB-TEVA-2019-GB-1061617

PATIENT
  Age: 29 Year
  Sex: Female
  Weight: 84.3 kg

DRUGS (9)
  1. GABAPENTIN. [Concomitant]
     Active Substance: GABAPENTIN
     Dates: start: 20170622
  2. IBUPROFEN. [Concomitant]
     Active Substance: IBUPROFEN
     Dates: start: 20170612
  3. CABERGOLINE. [Suspect]
     Active Substance: CABERGOLINE
  4. METFORMIN [Concomitant]
     Active Substance: METFORMIN HYDROCHLORIDE
     Dates: start: 20170622
  5. AMITRIPTYLINE [Concomitant]
     Active Substance: AMITRIPTYLINE
     Dosage: ONE OR TWO TABLET AT NIGHT
     Dates: start: 20170622
  6. LEVOTHYROXINE. [Concomitant]
     Active Substance: LEVOTHYROXINE
     Dates: start: 20170612
  7. COCODAMOL [Concomitant]
     Active Substance: ACETAMINOPHEN\CODEINE PHOSPHATE
     Dosage: 1-2 CAPSULES UP TO FOUR TIMES DAILY.?30MG/500MG
     Dates: start: 20170531
  8. RANITIDINE. [Concomitant]
     Active Substance: RANITIDINE
     Dosage: 1 DAILY
     Dates: start: 20170531
  9. TRANEXAMIC ACID. [Concomitant]
     Active Substance: TRANEXAMIC ACID
     Dosage: UP  TO THREE TIMES A DAY FOR UP TO 4 DAYS DURING PERIOD
     Dates: start: 20170622

REACTIONS (4)
  - Chills [Unknown]
  - Hyperhidrosis [Not Recovered/Not Resolved]
  - Pyrexia [Unknown]
  - Pituitary tumour benign [Unknown]

NARRATIVE: CASE EVENT DATE: 20170808
